FAERS Safety Report 5603373-7 (Version None)
Quarter: 2008Q1

REPORT INFORMATION
  Report Type: 
  Country: None (occurrence: None)
  Receive Date: 20080122
  Receipt Date: 20080114
  Transmission Date: 20080703
  Serious: Yes (Other)
  Sender: FDA-Public Use
  Company Number: 18219

PATIENT
  Age: 50 Year
  Sex: Female

DRUGS (1)
  1. ANZATAX [Suspect]
     Indication: OVARIAN CANCER
     Dosage: 320 MG PER_CYCLE IV
     Route: 042
     Dates: start: 20080110, end: 20080110

REACTIONS (6)
  - ANGIOEDEMA [None]
  - BRONCHOSPASM [None]
  - HYPOTENSION [None]
  - LARYNGOSPASM [None]
  - PAIN IN EXTREMITY [None]
  - PELVIC PAIN [None]
